FAERS Safety Report 15368805 (Version 2)
Quarter: 2018Q3

REPORT INFORMATION
  Report Type: Report from Study
  Country: US (occurrence: US)
  Receive Date: 20180911
  Receipt Date: 20180919
  Transmission Date: 20181010
  Serious: Yes (Death, Life-Threatening, Other)
  Sender: FDA-Public Use
  Company Number: US-TEVA-2018-US-952621

PATIENT
  Age: 65 Year
  Sex: Female

DRUGS (3)
  1. ALPRAZOLAM. [Suspect]
     Active Substance: ALPRAZOLAM
     Route: 065
  2. VANTRELA ER [Suspect]
     Active Substance: HYDROCODONE BITARTRATE
     Route: 065
  3. DIAZEPAM. [Suspect]
     Active Substance: DIAZEPAM
     Route: 065

REACTIONS (5)
  - Respiratory depression [Unknown]
  - Hypotension [Unknown]
  - Coma [Unknown]
  - Depressed level of consciousness [Unknown]
  - Toxicity to various agents [Fatal]
